FAERS Safety Report 6821760-6 (Version None)
Quarter: 2010Q3

REPORT INFORMATION
  Report Type: 
  Country: None (occurrence: None)
  Receive Date: 20100702
  Receipt Date: 20100623
  Transmission Date: 20110219
  Serious: Yes (Death)
  Sender: FDA-Public Use
  Company Number: 009265

PATIENT
  Age: 76 Year
  Sex: Male

DRUGS (7)
  1. PLETAL [Suspect]
     Indication: ARTERIOSCLEROSIS OBLITERANS
     Dosage: 50 MG, QD, ORAL
     Route: 048
     Dates: start: 20090824, end: 20091022
  2. ASPIRIN [Suspect]
     Dosage: 100 MG, QD, ORAL
     Route: 048
     Dates: end: 20091022
  3. CANDESARTAN CILEXETIL [Concomitant]
  4. AMLODIPINE BESYLATE [Concomitant]
  5. RABEPRAZOLE SODIUM [Concomitant]
  6. LASIX [Concomitant]
  7. ALDACTONE [Concomitant]

REACTIONS (1)
  - HEPATIC NEOPLASM MALIGNANT RECURRENT [None]
